FAERS Safety Report 16168665 (Version 1)
Quarter: 2019Q2

REPORT INFORMATION
  Report Type: Spontaneous
  Country: US (occurrence: US)
  Receive Date: 20190405
  Receipt Date: 20190405
  Transmission Date: 20190711
  Serious: No
  Sender: FDA-Public Use
  Company Number: None

PATIENT
  Age: 72 Year

DRUGS (1)
  1. ENBREL [Suspect]
     Active Substance: ETANERCEPT
     Dosage: ?          OTHER FREQUENCY:EVERY WEEK;?
     Route: 058

REACTIONS (3)
  - Pulmonary thrombosis [None]
  - Eye irritation [None]
  - Eye pruritus [None]

NARRATIVE: CASE EVENT DATE: 20190101
